FAERS Safety Report 13550940 (Version 1)
Quarter: 2017Q2

REPORT INFORMATION
  Report Type: Spontaneous
  Country: CH (occurrence: CH)
  Receive Date: 20170516
  Receipt Date: 20170516
  Transmission Date: 20170830
  Serious: Yes (Hospitalization)
  Sender: FDA-Public Use
  Company Number: CH-PFIZER INC-2017208805

PATIENT
  Age: 76 Year
  Sex: Female

DRUGS (5)
  1. MADOPAR [Interacting]
     Active Substance: BENSERAZIDE HYDROCHLORIDE\LEVODOPA
     Indication: PARKINSON^S DISEASE
     Dosage: 250 MG, 4X/DAY
     Route: 048
  2. REQUIP [Interacting]
     Active Substance: ROPINIROLE HYDROCHLORIDE
     Dosage: 8 MG, 1X/DAY
     Route: 048
  3. DAFALGAN [Concomitant]
     Active Substance: ACETAMINOPHEN
     Dosage: 1 G, 3X/DAY
  4. LYRICA [Suspect]
     Active Substance: PREGABALIN
     Dosage: 75MG, 2X/DAY
     Route: 048
     Dates: start: 20170411, end: 20170413
  5. AMLODIPINE [Concomitant]
     Active Substance: AMLODIPINE BESYLATE
     Dosage: 10 MG, 1X/DAY

REACTIONS (3)
  - Drug interaction [Recovered/Resolved]
  - Delusional disorder, persecutory type [Recovered/Resolved]
  - Hallucination, visual [Recovered/Resolved]

NARRATIVE: CASE EVENT DATE: 20170411
